FAERS Safety Report 20913189 (Version 1)
Quarter: 2022Q2

REPORT INFORMATION
  Report Type: Spontaneous
  Country: US (occurrence: US)
  Receive Date: 20220603
  Receipt Date: 20220603
  Transmission Date: 20220721
  Serious: No
  Sender: FDA-Public Use
  Company Number: US-BRAINTREE LABORATORIES, INC.-2022BTE00242

PATIENT
  Age: 74 Year
  Sex: Male

DRUGS (4)
  1. SUTAB [Suspect]
     Active Substance: MAGNESIUM SULFATE\POTASSIUM CHLORIDE\SODIUM SULFATE
     Indication: Colonoscopy
     Dosage: 2 X 12 TABLETS, 1X
     Route: 048
     Dates: start: 20220321, end: 20220322
  2. PERCOCET [Concomitant]
     Active Substance: ACETAMINOPHEN\OXYCODONE HYDROCHLORIDE
     Dosage: 2 TABLETS, 1X/DAY
  3. MARIJUANA TINCTURE [Concomitant]
     Dosage: UNK, 1X/DAY AT NIGHT
  4. ALCOHOL [Concomitant]
     Active Substance: ALCOHOL
     Dosage: 2 BEERS AT NIGHT

REACTIONS (4)
  - Feeling cold [Unknown]
  - Feeling abnormal [Unknown]
  - Hypertension [Unknown]
  - Wrong technique in product usage process [Recovered/Resolved]

NARRATIVE: CASE EVENT DATE: 20220321
